FAERS Safety Report 17425899 (Version 5)
Quarter: 2021Q3

REPORT INFORMATION
  Report Type: Spontaneous
  Country: US (occurrence: US)
  Receive Date: 20200217
  Receipt Date: 20210803
  Transmission Date: 20211014
  Serious: Yes (Other)
  Sender: FDA-Public Use
  Company Number: US-PFIZER INC-2020066670

PATIENT
  Age: 60 Year
  Sex: Male
  Weight: 72.57 kg

DRUGS (7)
  1. DILANTIN [Suspect]
     Active Substance: PHENYTOIN
     Indication: EPILEPSY
     Dosage: 200 MG, 2X/DAY (100MG 2 CAPSULES TWICE A DAY)
     Route: 048
  2. KEPPRA [Concomitant]
     Active Substance: LEVETIRACETAM
     Indication: EPILEPSY
     Dosage: 1500 MG, 2X/DAY (2 TABLETS IN THE MORNING AND 2 TABLETS AT NIGHT)
     Route: 048
     Dates: start: 2010
  3. LYRICA [Concomitant]
     Active Substance: PREGABALIN
     Indication: EPILEPSY
     Dosage: 200 MG, 2X/DAY (2 CAPSULES IN THE MORNING AND 2 CAPSULES AT NIGHT)
     Route: 048
  4. LYRICA [Concomitant]
     Active Substance: PREGABALIN
     Indication: SEIZURE
     Dosage: UNK
  5. ASPIRIN [ACETYLSALICYLIC ACID] [Concomitant]
     Active Substance: ASPIRIN
     Indication: GASTRIC DISORDER
     Dosage: UNK
  6. DILANTIN [Suspect]
     Active Substance: PHENYTOIN
     Dosage: 200 MG, 2X/DAY (2 DF IN THE MORNING AND 2 DF AT NIGHT)
     Route: 048
  7. KEPPRA [Concomitant]
     Active Substance: LEVETIRACETAM
     Indication: SEIZURE
     Dosage: 1000 MG, 2X/DAY (TWO IN THE MORNING AND TWO IN THE NIGHT)

REACTIONS (2)
  - Drug ineffective [Unknown]
  - Upper limb fracture [Unknown]

NARRATIVE: CASE EVENT DATE: 202001
